FAERS Safety Report 10003869 (Version 2)
Quarter: 2014Q1

REPORT INFORMATION
  Report Type: Spontaneous
  Country: US (occurrence: US)
  Receive Date: 20140312
  Receipt Date: 20140312
  Transmission Date: 20141002
  Serious: Yes (Other)
  Sender: FDA-Public Use
  Company Number: US-INCYTE CORPORATION-2012IN002490

PATIENT
  Sex: Female

DRUGS (11)
  1. JAKAFI [Suspect]
     Indication: MYELOFIBROSIS
     Dosage: 5 MG, BID
     Dates: start: 20120608
  2. JAKAFI [Suspect]
     Dosage: 5 MG, QD
  3. JAKAFI [Suspect]
     Dosage: 5 MG, BID
  4. JAKAFI [Suspect]
     Dosage: 5 MG, QD
  5. JAKAFI [Suspect]
     Dosage: 5 MG QD ALTERNATING WITH 5 MG BID
  6. JAKAFI [Suspect]
     Dosage: 5 MG, QD
  7. PROCRIT [Suspect]
  8. MULTIVITAMINS [Concomitant]
  9. VITAMIN C [Concomitant]
  10. CALCIUM [Concomitant]
  11. ALLOPURINOL [Concomitant]

REACTIONS (4)
  - Platelet count decreased [Not Recovered/Not Resolved]
  - Stem cell transplant [Recovering/Resolving]
  - Splenomegaly [Recovering/Resolving]
  - Contusion [Unknown]
